FAERS Safety Report 13864443 (Version 1)
Quarter: 2017Q3

REPORT INFORMATION
  Report Type: Spontaneous
  Country: US (occurrence: US)
  Receive Date: 20170814
  Receipt Date: 20170814
  Transmission Date: 20171127
  Serious: Yes (Other)
  Sender: FDA-Public Use
  Company Number: US-PURDUE-USA-2017-0140243

PATIENT
  Sex: Male

DRUGS (1)
  1. MORPHINE SULFATE EXTENDED-RELEASE TABLETS (RHODES 74-769) [Suspect]
     Active Substance: MORPHINE SULFATE
     Indication: PRODUCT USED FOR UNKNOWN INDICATION
     Dosage: 15 MG, UNK
     Route: 048
     Dates: end: 20170805

REACTIONS (7)
  - Loss of employment [Unknown]
  - Agitation [Not Recovered/Not Resolved]
  - Suicidal ideation [Unknown]
  - Aggression [Unknown]
  - Screaming [Unknown]
  - Weight decreased [Unknown]
  - Insomnia [Unknown]
